FAERS Safety Report 6371281-2 (Version None)
Quarter: 2009Q3

REPORT INFORMATION
  Report Type: 
  Country: None (occurrence: None)
  Receive Date: 20090923
  Receipt Date: 20090922
  Transmission Date: 20100115
  Serious: Yes (Hospitalization)
  Sender: FDA-Public Use
  Company Number: US-BRISTOL-MYERS SQUIBB COMPANY-14772297

PATIENT
  Age: 57 Year
  Sex: Male
  Weight: 57 kg

DRUGS (2)
  1. SPRYCEL [Suspect]
     Indication: CHRONIC MYELOID LEUKAEMIA
  2. IMODIUM [Concomitant]
     Indication: DIARRHOEA

REACTIONS (1)
  - INTESTINAL OBSTRUCTION [None]
